FAERS Safety Report 5369914-2 (Version None)
Quarter: 2007Q2

REPORT INFORMATION
  Report Type: 
  Country: None (occurrence: None)
  Receive Date: 20070621
  Receipt Date: 20070614
  Transmission Date: 20071010
  Serious: Yes (Other)
  Sender: FDA-Public Use
  Company Number: 2007-02856

PATIENT
  Age: 52 Year
  Sex: Male

DRUGS (1)
  1. PREDNISONE TAB [Suspect]
     Indication: ENDOCRINE OPHTHALMOPATHY
     Dosage: 20 MG, DAILY, ORAL
     Route: 048
     Dates: start: 20050101, end: 20050101

REACTIONS (1)
  - CHORIORETINOPATHY [None]
